FAERS Safety Report 11323380 (Version 1)
Quarter: 2015Q3

REPORT INFORMATION
  Report Type: Spontaneous
  Country: US (occurrence: None)
  Receive Date: 20150729
  Receipt Date: 20150729
  Transmission Date: 20151125
  Serious: Yes (Life-Threatening, Hospitalization, Disabling)
  Sender: FDA-Public Use
  Company Number: None

PATIENT
  Age: 82 Year
  Sex: Male
  Weight: 72.58 kg

DRUGS (5)
  1. LEVOTHYROXIN [Concomitant]
     Active Substance: LEVOTHYROXINE
  2. ASA [Concomitant]
     Active Substance: ASPIRIN
  3. LIPITOR [Concomitant]
     Active Substance: ATORVASTATIN CALCIUM
  4. VITAMIN C [Concomitant]
     Active Substance: ASCORBIC ACID
  5. SILVER SULFADIAZINE CREAM [Suspect]
     Active Substance: SILVER SULFADIAZINE
     Indication: THERMAL BURN
     Route: 061

REACTIONS (2)
  - Rash erythematous [None]
  - Thermal burn [None]

NARRATIVE: CASE EVENT DATE: 20150714
